FAERS Safety Report 5004959-3 (Version None)
Quarter: 2006Q1

REPORT INFORMATION
  Report Type: 
  Country: None (occurrence: None)
  Receive Date: 20060321
  Receipt Date: 20060110
  Transmission Date: 20060701
  Serious: No
  Sender: FDA-Public Use
  Company Number: YPA20050521

PATIENT
  Sex: Female
  Weight: 62.7 kg

DRUGS (12)
  1. VESICARE [Suspect]
     Indication: POLLAKIURIA
     Dosage: 5 MG, UID/QD, ORAL
     Route: 048
     Dates: start: 20050801
  2. XALATAN [Concomitant]
  3. PREVACID [Concomitant]
  4. PRINIVIL [Concomitant]
  5. NORVASC [Concomitant]
  6. COLAZAL (BALSALAZIDE SODIUM) [Concomitant]
  7. SANCTURA (TROSPIUM CHLORIDE) [Concomitant]
  8. GLUCOSAMINE (GLUCOSAMINE) [Concomitant]
  9. MULTIIVITAMINS (ERGOCALCIFEROL, ASCORBIC ACID, FOLIC ACID, THIAMINE HY [Concomitant]
  10. FOLIC ACID [Concomitant]
  11. VITAMIN B-12 INJECTION [Concomitant]
  12. CITRACAL (CALCIUM CITRATE) [Concomitant]

REACTIONS (2)
  - DRUG INEFFECTIVE [None]
  - MICTURITION DISORDER [None]
